FAERS Safety Report 10175958 (Version 1)
Quarter: 2014Q2

REPORT INFORMATION
  Report Type: Spontaneous
  Country: GB (occurrence: GB)
  Receive Date: 20140516
  Receipt Date: 20140516
  Transmission Date: 20141212
  Serious: Yes (Death)
  Sender: FDA-Public Use
  Company Number: GB-ACCORD-023569

PATIENT
  Age: 67 Year
  Sex: Male
  Weight: 67 kg

DRUGS (7)
  1. GEMCITABINE/GEMCITABINE HYDROCHLORIDE [Suspect]
     Indication: LUNG NEOPLASM MALIGNANT
     Route: 042
     Dates: start: 20131218, end: 20131218
  2. LISINOPRIL [Concomitant]
     Route: 048
  3. ASPIRIN [Concomitant]
     Route: 048
  4. OMEPRAZOLE [Concomitant]
     Route: 048
  5. DIGOXIN [Concomitant]
     Route: 048
  6. FUROSEMIDE [Concomitant]
     Route: 048
  7. CARBOPLATIN [Suspect]
     Indication: LUNG NEOPLASM MALIGNANT
     Route: 042
     Dates: start: 20131218, end: 20131218

REACTIONS (2)
  - Neutropenic sepsis [Fatal]
  - Renal failure acute [Fatal]
